FAERS Safety Report 7396474-7 (Version None)
Quarter: 2011Q2

REPORT INFORMATION
  Report Type: 
  Country: None (occurrence: None)
  Receive Date: 20110406
  Receipt Date: 20110307
  Transmission Date: 20111010
  Serious: Yes (Hospitalization)
  Sender: FDA-Public Use
  Company Number: US-BAYER-201027723NA

PATIENT
  Sex: Female
  Weight: 86.168 kg

DRUGS (6)
  1. FEXOFENADINE [Concomitant]
     Dosage: UNK
     Dates: start: 20080101
  2. UNCODEABLE ^UNCLASSIFIABLE^ [Concomitant]
     Indication: PAIN
     Dosage: UNK
     Dates: start: 20080816
  3. PROAIR HFA [Concomitant]
     Dosage: UNK
     Dates: start: 20080101
  4. YAZ [Suspect]
     Indication: ORAL CONTRACEPTION
     Dosage: UNK UNK, UNK
     Route: 048
     Dates: start: 20080701, end: 20080830
  5. ALBUTEROL [Concomitant]
     Dosage: UNK
     Dates: start: 20080101
  6. SEROQUEL [Concomitant]

REACTIONS (1)
  - PULMONARY EMBOLISM [None]
